FAERS Safety Report 26144423 (Version 1)
Quarter: 2025Q4

REPORT INFORMATION
  Report Type: Spontaneous
  Country: EU (occurrence: EU)
  Receive Date: 20251211
  Receipt Date: 20251211
  Transmission Date: 20260118
  Serious: Yes (Other)
  Sender: AUROBINDO
  Company Number: EU-AEMPS-1783356

PATIENT
  Age: 54 Year
  Sex: Male

DRUGS (3)
  1. CELECOXIB [Suspect]
     Active Substance: CELECOXIB
     Indication: Sciatica
     Dosage: 200 MILLIGRAM, ONCE A DAY
     Dates: start: 20250821
  2. AMLODIPINO CINFA 5 mg COMPRIMIDOS EFG , 30 comprimidos [Concomitant]
     Indication: Blood pressure increased
     Dosage: 5 MILLIGRAM, ONCE A DAY
     Dates: start: 20221117
  3. OMEPRAZOL PENSA 20 mg CAPSULAS DURAS GASTRORRESISTENTES EFG, 56 c?psul [Concomitant]
     Indication: Intervertebral disc displacement
     Dosage: 20 MILLIGRAM, ONCE A DAY
     Dates: start: 20250321

REACTIONS (2)
  - Palpitations [Recovered/Resolved]
  - Malaise [Recovered/Resolved]

NARRATIVE: CASE EVENT DATE: 20250821
